FAERS Safety Report 18124314 (Version 2)
Quarter: 2020Q3

REPORT INFORMATION
  Report Type: Spontaneous
  Country: US (occurrence: US)
  Receive Date: 20200807
  Receipt Date: 20200815
  Transmission Date: 20201103
  Serious: No
  Sender: FDA-Public Use
  Company Number: US-GLAXOSMITHKLINE-US2020AMR148545

PATIENT
  Sex: Female

DRUGS (1)
  1. ZEJULA [Suspect]
     Active Substance: NIRAPARIB
     Indication: BRAIN NEOPLASM MALIGNANT
     Dosage: 200 MG, QD
     Route: 048
     Dates: start: 20200715

REACTIONS (6)
  - Fatigue [Unknown]
  - Candida infection [Unknown]
  - Hypersomnia [Unknown]
  - Off label use [Unknown]
  - Product use in unapproved indication [Unknown]
  - Ill-defined disorder [Unknown]
